FAERS Safety Report 24711128 (Version 2)
Quarter: 2024Q4

REPORT INFORMATION
  Report Type: Spontaneous
  Country: CA (occurrence: CA)
  Receive Date: 20241209
  Receipt Date: 20241230
  Transmission Date: 20250114
  Serious: Yes (Hospitalization)
  Sender: BAYER HEALTHCARE PHARMACEUTICALS INC.
  Company Number: CA-BAYER-2024A171027

PATIENT
  Age: 26 Year
  Sex: Female

DRUGS (1)
  1. MIRENA [Suspect]
     Active Substance: LEVONORGESTREL
     Indication: Contraception
     Dosage: 20?G/DAY
     Route: 015
     Dates: start: 20241022, end: 20241128

REACTIONS (7)
  - Retained products of conception [None]
  - Post procedural haemorrhage [None]
  - Malaise [Recovered/Resolved]
  - Uterine infection [Recovered/Resolved]
  - Pyrexia [Recovered/Resolved]
  - Pelvic pain [None]
  - Device use issue [None]

NARRATIVE: CASE EVENT DATE: 20241022
